FAERS Safety Report 22061874 (Version 1)
Quarter: 2023Q1

REPORT INFORMATION
  Report Type: Spontaneous
  Country: US (occurrence: US)
  Receive Date: 20230304
  Receipt Date: 20230304
  Transmission Date: 20230418
  Serious: Yes (Other)
  Sender: FDA-Public Use
  Company Number: US-MLMSERVICE-20230217-4112523-1

PATIENT
  Age: 5 Year
  Sex: Female

DRUGS (35)
  1. ETOPOSIDE [Suspect]
     Active Substance: ETOPOSIDE
     Indication: Metastases to lung
     Dates: start: 2015
  2. DOXORUBICIN [Suspect]
     Active Substance: DOXORUBICIN
     Indication: Metastases to spleen
     Dates: start: 2015
  3. IFOSFAMIDE [Suspect]
     Active Substance: IFOSFAMIDE
     Indication: Teratoma
     Dates: start: 2015
  4. CYCLOPHOSPHAMIDE [Suspect]
     Active Substance: CYCLOPHOSPHAMIDE
     Indication: Metastases to spleen
     Dates: start: 2015
  5. VINCRISTINE [Suspect]
     Active Substance: VINCRISTINE
     Indication: Metastases to soft tissue
     Dates: start: 2015
  6. VINCRISTINE [Suspect]
     Active Substance: VINCRISTINE
     Indication: Metastases to peritoneum
     Dates: start: 2015
  7. DOXORUBICIN [Suspect]
     Active Substance: DOXORUBICIN
     Indication: Teratoma
     Dates: start: 2015
  8. ETOPOSIDE [Suspect]
     Active Substance: ETOPOSIDE
     Indication: Metastases to peritoneum
     Dates: start: 2015
  9. IFOSFAMIDE [Suspect]
     Active Substance: IFOSFAMIDE
     Indication: Metastases to diaphragm
     Dates: start: 2015
  10. IFOSFAMIDE [Suspect]
     Active Substance: IFOSFAMIDE
     Indication: Metastases to spleen
     Dates: start: 2015
  11. IFOSFAMIDE [Suspect]
     Active Substance: IFOSFAMIDE
     Indication: Metastases to peritoneum
     Dates: start: 2015
  12. IFOSFAMIDE [Suspect]
     Active Substance: IFOSFAMIDE
     Indication: Primitive neuroectodermal tumour metastatic
     Dates: start: 2015
  13. IFOSFAMIDE [Suspect]
     Active Substance: IFOSFAMIDE
     Indication: Metastases to soft tissue
     Dates: start: 2015
  14. CYCLOPHOSPHAMIDE [Suspect]
     Active Substance: CYCLOPHOSPHAMIDE
     Indication: Metastases to peritoneum
     Dates: start: 2015
  15. CYCLOPHOSPHAMIDE [Suspect]
     Active Substance: CYCLOPHOSPHAMIDE
     Indication: Metastases to lung
     Dates: start: 2015
  16. CYCLOPHOSPHAMIDE [Suspect]
     Active Substance: CYCLOPHOSPHAMIDE
     Indication: Metastases to diaphragm
     Dates: start: 2015
  17. CYCLOPHOSPHAMIDE [Suspect]
     Active Substance: CYCLOPHOSPHAMIDE
     Indication: Teratoma
     Dates: start: 2015
  18. CYCLOPHOSPHAMIDE [Suspect]
     Active Substance: CYCLOPHOSPHAMIDE
     Indication: Metastases to soft tissue
     Dates: start: 2015
  19. VINCRISTINE [Suspect]
     Active Substance: VINCRISTINE
     Indication: Teratoma
     Dates: start: 2015
  20. VINCRISTINE [Suspect]
     Active Substance: VINCRISTINE
     Indication: Metastases to spleen
     Dates: start: 2015
  21. VINCRISTINE [Suspect]
     Active Substance: VINCRISTINE
     Indication: Metastases to lung
     Dates: start: 2015
  22. VINCRISTINE [Suspect]
     Active Substance: VINCRISTINE
     Indication: Primitive neuroectodermal tumour metastatic
     Dates: start: 2015
  23. VINCRISTINE [Suspect]
     Active Substance: VINCRISTINE
     Indication: Metastases to diaphragm
     Dates: start: 2015
  24. DOXORUBICIN [Suspect]
     Active Substance: DOXORUBICIN
     Indication: Metastases to diaphragm
     Dates: start: 2015
  25. DOXORUBICIN [Suspect]
     Active Substance: DOXORUBICIN
     Indication: Metastases to soft tissue
     Dates: start: 2015
  26. DOXORUBICIN [Suspect]
     Active Substance: DOXORUBICIN
     Indication: Metastases to lung
     Dates: start: 2015
  27. DOXORUBICIN [Suspect]
     Active Substance: DOXORUBICIN
     Indication: Primitive neuroectodermal tumour metastatic
     Dates: start: 2015
  28. DOXORUBICIN [Suspect]
     Active Substance: DOXORUBICIN
     Indication: Metastases to peritoneum
     Dates: start: 2015
  29. ETOPOSIDE [Suspect]
     Active Substance: ETOPOSIDE
     Indication: Teratoma
     Dates: start: 2015
  30. ETOPOSIDE [Suspect]
     Active Substance: ETOPOSIDE
     Indication: Primitive neuroectodermal tumour metastatic
     Dates: start: 2015
  31. ETOPOSIDE [Suspect]
     Active Substance: ETOPOSIDE
     Indication: Metastases to soft tissue
     Dates: start: 2015
  32. ETOPOSIDE [Suspect]
     Active Substance: ETOPOSIDE
     Indication: Metastases to diaphragm
     Dates: start: 2015
  33. ETOPOSIDE [Suspect]
     Active Substance: ETOPOSIDE
     Indication: Metastases to spleen
     Dates: start: 2015
  34. IFOSFAMIDE [Suspect]
     Active Substance: IFOSFAMIDE
     Indication: Metastases to lung
     Dates: start: 2015
  35. CYCLOPHOSPHAMIDE [Suspect]
     Active Substance: CYCLOPHOSPHAMIDE
     Indication: Primitive neuroectodermal tumour metastatic
     Dates: start: 2015

REACTIONS (4)
  - Pneumonia pneumococcal [Unknown]
  - Pneumococcal bacteraemia [Unknown]
  - Febrile neutropenia [Unknown]
  - Off label use [Unknown]

NARRATIVE: CASE EVENT DATE: 20150101
